FAERS Safety Report 7901388-7 (Version None)
Quarter: 2011Q4

REPORT INFORMATION
  Report Type: 
  Country: None (occurrence: None)
  Receive Date: 20111108
  Receipt Date: 20111031
  Transmission Date: 20120403
  Serious: Yes (Death, Hospitalization, Other)
  Sender: FDA-Public Use
  Company Number: PHHO2011AR04046

PATIENT
  Sex: Female
  Weight: 59 kg

DRUGS (9)
  1. FLUTICASONE PROPIONATE [Suspect]
     Dosage: 100 MG, QD
     Route: 048
     Dates: start: 20100915, end: 20110424
  2. ALBUTEROL SULFATE AUTOHALER [Suspect]
     Dosage: UNK
     Dates: start: 20100915, end: 20110424
  3. FUROSEMIDE [Concomitant]
     Indication: OEDEMA PERIPHERAL
     Dosage: 40 MG DAILY
     Dates: start: 20100712, end: 20110222
  4. COMPARATOR TIOTROPIUM [Suspect]
     Indication: CHRONIC OBSTRUCTIVE PULMONARY DISEASE
     Dosage: 18 MG, QD
     Dates: start: 20101006
  5. BLINDED QVA149 [Suspect]
     Indication: CHRONIC OBSTRUCTIVE PULMONARY DISEASE
     Dosage: NO TREATMENT
  6. BLINDED NVA237 [Suspect]
     Indication: CHRONIC OBSTRUCTIVE PULMONARY DISEASE
     Dosage: NO TREATMENT
  7. ESPIRONOLACTONA [Concomitant]
     Indication: OEDEMA PERIPHERAL
     Dosage: 25 MG, DAILY
     Dates: start: 20100712
  8. BLINDED NO TREATMENT RECEIVED [Suspect]
     Indication: CHRONIC OBSTRUCTIVE PULMONARY DISEASE
     Dosage: NO TREATMENT
  9. BLINDED TIOTROPIUM [Suspect]
     Indication: CHRONIC OBSTRUCTIVE PULMONARY DISEASE
     Dosage: NO TREATMENT

REACTIONS (4)
  - CARDIO-RESPIRATORY ARREST [None]
  - CONCOMITANT DISEASE PROGRESSION [None]
  - BILE DUCT OBSTRUCTION [None]
  - PANCREATIC NEOPLASM [None]
